FAERS Safety Report 7693045-X (Version None)
Quarter: 2011Q3

REPORT INFORMATION
  Report Type: 
  Country: None (occurrence: None)
  Receive Date: 20110819
  Receipt Date: 20110803
  Transmission Date: 20111222
  Serious: Yes (Hospitalization)
  Sender: FDA-Public Use
  Company Number: US-MYLANLABS-2011S1016164

PATIENT
  Age: 85 Year
  Sex: Male

DRUGS (2)
  1. ROPINIROLE [Suspect]
     Dosage: 3MG DAILY
     Route: 065
  2. ROPINIROLE [Suspect]
     Indication: RESTLESS LEGS SYNDROME
     Route: 065

REACTIONS (1)
  - PSYCHOTIC DISORDER [None]
